FAERS Safety Report 10243443 (Version 2)
Quarter: 2014Q3

REPORT INFORMATION
  Report Type: Spontaneous
  Country: US (occurrence: None)
  Receive Date: 20140616
  Receipt Date: 20140801
  Transmission Date: 20150326
  Serious: Yes (Other)
  Sender: FDA-Public Use
  Company Number: 2014US003181

PATIENT
  Age: 64 Year
  Sex: Female
  Weight: 57 kg

DRUGS (10)
  1. FAMOTIDINE (FAMOTIDINE) [Concomitant]
     Active Substance: FAMOTIDINE
  2. NAPROXEN (NAPROXEN SODIUM) [Concomitant]
  3. SYNTHROID [Concomitant]
     Active Substance: LEVOTHYROXINE SODIUM
  4. MEPRON (ATOVAQUONE) [Concomitant]
  5. ATENOLOL (ATENOLOL) [Concomitant]
     Active Substance: ATENOLOL
  6. ICLUSIG [Suspect]
     Active Substance: PONATINIB
     Indication: CHRONIC MYELOID LEUKAEMIA
     Route: 048
     Dates: start: 20140128
  7. NORVASC [Concomitant]
     Active Substance: AMLODIPINE BESYLATE
  8. TACROLIMUS (TACROLIMUS) [Concomitant]
     Active Substance: TACROLIMUS
  9. ACYCLOVIR (ACYCLOVIR) [Concomitant]
     Active Substance: ACYCLOVIR
  10. LISINOPRIL (LISINOPRIL) [Concomitant]
     Active Substance: LISINOPRIL

REACTIONS (5)
  - Splenic artery aneurysm [None]
  - Headache [None]
  - Pulmonary mass [None]
  - Splenic artery thrombosis [None]
  - Aortic calcification [None]

NARRATIVE: CASE EVENT DATE: 201208
